FAERS Safety Report 8598216-6 (Version None)
Quarter: 2012Q3

REPORT INFORMATION
  Report Type: 
  Country: None (occurrence: None)
  Receive Date: 20120802
  Receipt Date: 20120725
  Transmission Date: 20120928
  Serious: Yes (Death, Hospitalization, Other)
  Sender: FDA-Public Use
  Company Number: 2012MA009132

PATIENT
  Age: 69 Year
  Sex: Male

DRUGS (2)
  1. KADIAN [Suspect]
     Indication: PAIN
     Dosage: PO
     Route: 048
  2. ACETAMINOPHEN [Suspect]

REACTIONS (11)
  - SOMNOLENCE [None]
  - AGITATION [None]
  - INTENTIONAL OVERDOSE [None]
  - TOXICITY TO VARIOUS AGENTS [None]
  - HYPOTENSION [None]
  - COAGULOPATHY [None]
  - ASPARTATE AMINOTRANSFERASE INCREASED [None]
  - UNRESPONSIVE TO STIMULI [None]
  - RESTLESSNESS [None]
  - THROMBOCYTOPENIA [None]
  - HEPATIC ENZYME INCREASED [None]
